FAERS Safety Report 10285845 (Version 1)
Quarter: 2014Q3

REPORT INFORMATION
  Report Type: Spontaneous
  Country: US (occurrence: None)
  Receive Date: 20140703
  Receipt Date: 20140703
  Transmission Date: 20150326
  Serious: Yes (Life-Threatening)
  Sender: FDA-Public Use
  Company Number: None

PATIENT
  Age: 43 Year
  Sex: Female

DRUGS (10)
  1. HERCEPTIN [Concomitant]
     Active Substance: TRASTUZUMAB
  2. AMBIEN [Concomitant]
     Active Substance: ZOLPIDEM TARTRATE
  3. ANASTROZOLE. [Concomitant]
     Active Substance: ANASTROZOLE
  4. FENTANYL. [Concomitant]
     Active Substance: FENTANYL
  5. BACLOFEN. [Concomitant]
     Active Substance: BACLOFEN
  6. LYRICA [Concomitant]
     Active Substance: PREGABALIN
  7. ANTIOXIDANT SUPPLEMENTS [Concomitant]
  8. ORENCIA [Suspect]
     Active Substance: ABATACEPT
     Indication: BEHCET^S SYNDROME
     Dosage: 125 MG 1 INJECTION EVERY 2 EEKS INJECTIONS
     Dates: start: 201404, end: 201301
  9. ORENCIA [Suspect]
     Active Substance: ABATACEPT
     Indication: RHEUMATOID ARTHRITIS
     Dosage: 125 MG 1 INJECTION EVERY 2 EEKS INJECTIONS
     Dates: start: 201404, end: 201301
  10. CYMBALTA [Concomitant]
     Active Substance: DULOXETINE HYDROCHLORIDE

REACTIONS (1)
  - Breast cancer stage III [None]

NARRATIVE: CASE EVENT DATE: 20130101
